FAERS Safety Report 6464678-3 (Version None)
Quarter: 2009Q4

REPORT INFORMATION
  Report Type: 
  Country: None (occurrence: None)
  Receive Date: 20091124
  Receipt Date: 20091117
  Transmission Date: 20100525
  Serious: Yes (Hospitalization)
  Sender: FDA-Public Use
  Company Number: CERZ-1000998

PATIENT
  Age: 74 Year
  Sex: Female
  Weight: 71.7 kg

DRUGS (1)
  1. CEREZYME [Suspect]
     Indication: GAUCHER'S DISEASE
     Dosage: 2200 U, Q3W, INTRAVENOUS
     Route: 042
     Dates: start: 19980119

REACTIONS (2)
  - DIVERTICULITIS [None]
  - RASH [None]
